FAERS Safety Report 6732141-8 (Version None)
Quarter: 2010Q2

REPORT INFORMATION
  Report Type: 
  Country: None (occurrence: None)
  Receive Date: 20100519
  Receipt Date: 20100507
  Transmission Date: 20101027
  Serious: Yes (Other)
  Sender: FDA-Public Use
  Company Number: US-WYE-H15068610

PATIENT
  Sex: Male
  Weight: 79.45 kg

DRUGS (8)
  1. PRISTIQ [Suspect]
     Indication: DEPRESSION
     Route: 048
     Dates: start: 20070101
  2. FLOMAX [Concomitant]
     Dosage: UNKNOWN
  3. SPIRIVA [Concomitant]
     Dosage: UNKNOWN
  4. ALBUTEROL [Concomitant]
     Dosage: UNKNOWN
  5. HYDROCODONE [Concomitant]
     Dosage: UNKNOWN
  6. LISINOPRIL [Concomitant]
     Dosage: UNKNOWN
  7. CLONAZEPAM [Concomitant]
     Dosage: UNKNOWN
  8. AVODART [Concomitant]
     Dosage: UNKNOWN

REACTIONS (3)
  - HEADACHE [None]
  - OCCIPITAL NEURALGIA [None]
  - TREMOR [None]
